FAERS Safety Report 9293842 (Version 2)
Quarter: 2013Q2

REPORT INFORMATION
  Report Type: Spontaneous
  Country: NL (occurrence: NL)
  Receive Date: 20130516
  Receipt Date: 20130529
  Transmission Date: 20140414
  Serious: Yes (Hospitalization, Other)
  Sender: FDA-Public Use
  Company Number: PHHY2013NL048197

PATIENT
  Sex: Female

DRUGS (3)
  1. TRAMADOL [Suspect]
     Indication: HEADACHE
     Dosage: MATERNAL DOSE 100 MG TID
     Route: 064
  2. TRAMADOL [Suspect]
     Indication: MIGRAINE
  3. CODEINE W/PARACETAMOL [Concomitant]
     Route: 064

REACTIONS (10)
  - Exaggerated startle response [Unknown]
  - Poor sucking reflex [Unknown]
  - Body temperature increased [Unknown]
  - Muscle tightness [Unknown]
  - Agitation neonatal [Unknown]
  - Tremor neonatal [Unknown]
  - Diarrhoea [Unknown]
  - Sleep disorder [Unknown]
  - Drug withdrawal syndrome neonatal [Unknown]
  - Foetal exposure during pregnancy [Unknown]
